FAERS Safety Report 25963441 (Version 1)
Quarter: 2025Q4

REPORT INFORMATION
  Report Type: Spontaneous
  Country: US (occurrence: US)
  Receive Date: 20251027
  Receipt Date: 20251027
  Transmission Date: 20260118
  Serious: No
  Sender: DR REDDYS
  Company Number: None

PATIENT
  Age: 18 Year
  Sex: Female

DRUGS (9)
  1. VALPROIC ACID [Suspect]
     Active Substance: VALPROIC ACID
     Indication: Catatonia
     Dosage: VALPROIC ACID VIA NGT 250MG NIGHTLY
     Dates: start: 2024, end: 2024
  2. LORAZEPAM [Concomitant]
     Active Substance: LORAZEPAM
     Indication: Catatonia
     Dosage: HIGH DOSE; GRADUALLY UP TITRATED TO 5MQ Q6H
     Dates: start: 202403, end: 2024
  3. LORAZEPAM [Concomitant]
     Active Substance: LORAZEPAM
     Dates: start: 2024, end: 2024
  4. LORAZEPAM [Concomitant]
     Active Substance: LORAZEPAM
     Route: 042
     Dates: start: 202410, end: 2024
  5. LORAZEPAM [Concomitant]
     Active Substance: LORAZEPAM
     Dosage: TITRATED TO 40MG DAILY (10MG Q6H)
     Route: 042
     Dates: start: 2024, end: 2024
  6. LORAZEPAM [Concomitant]
     Active Substance: LORAZEPAM
     Dosage: LATER DOWN TITRATED TO 24MG (6MG Q6H).
     Route: 042
     Dates: start: 2025
  7. RISPERIDONE [Concomitant]
     Active Substance: RISPERIDONE
     Indication: Catatonia
     Dates: start: 2024, end: 2024
  8. RISPERIDONE [Concomitant]
     Active Substance: RISPERIDONE
     Dates: start: 2024, end: 2024
  9. RISPERIDONE [Concomitant]
     Active Substance: RISPERIDONE
     Dosage: 2MG NIGHTLY
     Dates: start: 2024, end: 2025

REACTIONS (1)
  - Tremor [Unknown]

NARRATIVE: CASE EVENT DATE: 20240101
